FAERS Safety Report 6805338-6 (Version None)
Quarter: 2010Q2

REPORT INFORMATION
  Report Type: 
  Country: None (occurrence: None)
  Receive Date: 20100628
  Receipt Date: 20071029
  Transmission Date: 20101027
  Serious: No
  Sender: FDA-Public Use
  Company Number: US-PFIZER INC-2007091016

PATIENT
  Sex: Male

DRUGS (4)
  1. XALATAN [Suspect]
  2. PREVACID [Concomitant]
  3. CELEBREX [Concomitant]
  4. THYROID TAB [Concomitant]

REACTIONS (1)
  - EYE IRRITATION [None]
